FAERS Safety Report 7378660-5 (Version None)
Quarter: 2011Q1

REPORT INFORMATION
  Report Type: 
  Country: None (occurrence: None)
  Receive Date: 20110328
  Receipt Date: 20110318
  Transmission Date: 20110831
  Serious: Yes (Disabling)
  Sender: FDA-Public Use
  Company Number: US-ASTRAZENECA-2011SE15812

PATIENT
  Age: 63 Year
  Sex: Female

DRUGS (1)
  1. NEXIUM [Suspect]
     Route: 048

REACTIONS (5)
  - VOMITING PROJECTILE [None]
  - SIGHT DISABILITY [None]
  - PAIN [None]
  - GLAUCOMA [None]
  - DRUG DOSE OMISSION [None]
